FAERS Safety Report 15905695 (Version 1)
Quarter: 2019Q1

REPORT INFORMATION
  Report Type: Report from Study
  Country: US (occurrence: US)
  Receive Date: 20190204
  Receipt Date: 20190204
  Transmission Date: 20190417
  Serious: Yes (Other)
  Sender: FDA-Public Use
  Company Number: US-JNJFOC-20190134396

PATIENT
  Sex: Female

DRUGS (1)
  1. TREMFYA [Suspect]
     Active Substance: GUSELKUMAB
     Indication: PSORIASIS
     Dosage: STRENGTH = 100 MG/ML
     Route: 058
     Dates: start: 201901

REACTIONS (7)
  - Rash macular [Not Recovered/Not Resolved]
  - Psoriasis [Not Recovered/Not Resolved]
  - Ephelides [Not Recovered/Not Resolved]
  - Iritis [Unknown]
  - Erythema [Not Recovered/Not Resolved]
  - Skin atrophy [Not Recovered/Not Resolved]
  - Contusion [Not Recovered/Not Resolved]
